FAERS Safety Report 5020840-8 (Version None)
Quarter: 2006Q2

REPORT INFORMATION
  Report Type: 
  Country: None (occurrence: None)
  Receive Date: 20060606
  Receipt Date: 20060606
  Transmission Date: 20061013
  Serious: No
  Sender: FDA-Public Use
  Company Number: None

PATIENT
  Sex: Male
  Weight: 100.6985 kg

DRUGS (4)
  1. OXYCODONE 40 MG [Suspect]
     Indication: BACK PAIN
  2. OXYCODONE 40 MG [Suspect]
     Indication: NECK PAIN
  3. OXYCODONE 40 MG [Suspect]
     Indication: PAIN IN EXTREMITY
  4. OXYCODONE 80 MG [Suspect]
     Indication: BLOOD PHOSPHORUS

REACTIONS (3)
  - DRUG INEFFECTIVE [None]
  - PHARMACEUTICAL PRODUCT COMPLAINT [None]
  - THERAPEUTIC RESPONSE UNEXPECTED WITH DRUG SUBSTITUTION [None]
